FAERS Safety Report 8960380 (Version 1)
Quarter: 2012Q4

REPORT INFORMATION
  Report Type: 
  Country: US (occurrence: US)
  Receive Date: 20121211
  Receipt Date: 20121211
  Transmission Date: 20130627
  Serious: No
  Sender: FDA-Public Use
  Company Number: US-009507513-1212USA001258

PATIENT
  Age: 22 Year
  Sex: Female
  Weight: 192 kg

DRUGS (1)
  1. NEXPLANON [Suspect]
     Dosage: UNK 68 mg UNK
     Route: 059
     Dates: start: 20121127

REACTIONS (1)
  - Device deployment issue [Unknown]
